FAERS Safety Report 14615964 (Version 1)
Quarter: 2018Q1

REPORT INFORMATION
  Report Type: Spontaneous
  Country: US (occurrence: US)
  Receive Date: 20180309
  Receipt Date: 20180309
  Transmission Date: 20180509
  Serious: Yes (Other)
  Sender: FDA-Public Use
  Company Number: US-009507513-1803USA000767

PATIENT
  Age: 54 Year
  Sex: Male

DRUGS (7)
  1. TRIAMCINOLONE [Interacting]
     Active Substance: TRIAMCINOLONE
     Indication: CHONDROCALCINOSIS PYROPHOSPHATE
     Dosage: 120 MG, OVER 2 MONTHS
     Route: 014
  2. RITONAVIR. [Interacting]
     Active Substance: RITONAVIR
     Indication: HIV INFECTION
  3. ISENTRESS [Concomitant]
     Active Substance: RALTEGRAVIR POTASSIUM
     Indication: HIV INFECTION
     Route: 048
  4. BECLOMETHASONE DIPROPIONATE [Interacting]
     Active Substance: BECLOMETHASONE DIPROPIONATE
     Route: 045
  5. ETRAVIRINE [Concomitant]
     Active Substance: ETRAVIRINE
     Indication: HIV INFECTION
  6. DARUNAVIR [Concomitant]
     Active Substance: DARUNAVIR
     Indication: HIV INFECTION
  7. DULERA [Suspect]
     Active Substance: FORMOTEROL FUMARATE DIHYDRATE\MOMETASONE FUROATE
     Route: 055

REACTIONS (1)
  - Cushing^s syndrome [Recovered/Resolved]
